FAERS Safety Report 6655963-0 (Version None)
Quarter: 2010Q1

REPORT INFORMATION
  Report Type: 
  Country: None (occurrence: None)
  Receive Date: 20100329
  Receipt Date: 20100317
  Transmission Date: 20100710
  Serious: Yes (Hospitalization)
  Sender: FDA-Public Use
  Company Number: ES-JNJFOC-20090403981

PATIENT
  Sex: Male
  Weight: 67 kg

DRUGS (9)
  1. PREZISTA [Suspect]
     Indication: HIV INFECTION
     Route: 048
  2. INTELENCE [Suspect]
     Indication: HIV INFECTION
     Route: 048
  3. TRUVADA [Suspect]
     Indication: HIV INFECTION
  4. RALTEGRAVIR [Suspect]
     Indication: HIV INFECTION
     Route: 048
  5. RITONAVIR [Suspect]
     Indication: HIV INFECTION
     Route: 048
  6. BECLOMETHASONE DIPROPIONATE [Concomitant]
     Indication: CHRONIC OBSTRUCTIVE PULMONARY DISEASE
  7. REXER [Concomitant]
     Indication: DEPRESSION
  8. IDALPREM [Concomitant]
     Indication: DEPRESSION
  9. THERAPEUTIC DRUG [Concomitant]

REACTIONS (4)
  - EOSINOPHILIA [None]
  - PYREXIA [None]
  - RASH ERYTHEMATOUS [None]
  - THROMBOCYTOPENIA [None]
